FAERS Safety Report 25915539 (Version 1)
Quarter: 2025Q4

REPORT INFORMATION
  Report Type: Spontaneous
  Country: JP (occurrence: JP)
  Receive Date: 20251013
  Receipt Date: 20251013
  Transmission Date: 20260118
  Serious: Yes (Other)
  Sender: PFIZER
  Company Number: JP-PFIZER INC-PV202500119388

PATIENT
  Age: 9 Decade
  Sex: Female

DRUGS (2)
  1. LORAZEPAM [Suspect]
     Active Substance: LORAZEPAM
     Indication: Sleep disorder
     Dosage: 1 MG/DAY
  2. BROTIZOLAM [Suspect]
     Active Substance: BROTIZOLAM
     Indication: Sleep disorder
     Dosage: 0.25 MG/DAY

REACTIONS (4)
  - Drug abuse [Unknown]
  - Drug ineffective [Unknown]
  - Intentional overdose [Unknown]
  - Off label use [Unknown]
